FAERS Safety Report 5163116-0 (Version None)
Quarter: 2006Q4

REPORT INFORMATION
  Report Type: 
  Country: None (occurrence: None)
  Receive Date: 20061201
  Receipt Date: 20061121
  Transmission Date: 20070319
  Serious: Yes (Death, Hospitalization)
  Sender: FDA-Public Use
  Company Number: CZ-ABBOTT-06P-217-0351193-00

PATIENT
  Sex: Male
  Weight: 50 kg

DRUGS (1)
  1. ZEMPLAR [Suspect]
     Indication: HYPERPARATHYROIDISM SECONDARY
     Dosage: 3 TIMES PER WEEK DURING HEMODIALYSIS
     Route: 042
     Dates: start: 20060606, end: 20061112

REACTIONS (7)
  - BLOOD PRESSURE DECREASED [None]
  - CARDIAC ARREST [None]
  - CARDIAC FAILURE [None]
  - FALL [None]
  - FEMUR FRACTURE [None]
  - HEART RATE DECREASED [None]
  - RENAL FAILURE CHRONIC [None]
